FAERS Safety Report 5844103-3 (Version None)
Quarter: 2008Q3

REPORT INFORMATION
  Report Type: 
  Country: None (occurrence: None)
  Receive Date: 20080813
  Receipt Date: 20080804
  Transmission Date: 20090109
  Serious: Yes (Hospitalization, Other)
  Sender: FDA-Public Use
  Company Number: JP-PFIZER INC-2008060602

PATIENT
  Sex: Female
  Weight: 43 kg

DRUGS (13)
  1. ZOLOFT [Suspect]
     Indication: DEPRESSIVE SYMPTOM
     Dosage: DAILY DOSE:100MG
     Route: 048
     Dates: start: 20080221, end: 20080713
  2. HALCION [Suspect]
     Indication: INSOMNIA
     Dosage: DAILY DOSE:.125MG
     Route: 048
     Dates: start: 20080401, end: 20080713
  3. LEXOTAN [Suspect]
     Indication: ANXIETY
     Dosage: DAILY DOSE:5MG
     Route: 048
     Dates: start: 20060401, end: 20080713
  4. ROHYPNOL [Suspect]
     Indication: INSOMNIA
     Dosage: DAILY DOSE:2MG
     Route: 048
     Dates: start: 20060401, end: 20080713
  5. LANDSEN [Suspect]
     Indication: INSOMNIA
     Dosage: DAILY DOSE:.5MG
     Route: 048
     Dates: start: 20060401, end: 20080713
  6. VEGETAMIN [Suspect]
     Indication: INSOMNIA
     Route: 048
     Dates: start: 20060401, end: 20080713
  7. DASEN [Concomitant]
  8. CLARITHROMYCIN [Concomitant]
  9. MUCODYNE [Concomitant]
  10. BUFFERIN [Concomitant]
  11. UBRETID [Concomitant]
  12. MYSLEE [Concomitant]
  13. ALL OTHER THERAPEUTIC PRODUCTS [Concomitant]

REACTIONS (5)
  - ACUTE RESPIRATORY FAILURE [None]
  - INCONTINENCE [None]
  - INTENTIONAL OVERDOSE [None]
  - LOSS OF CONSCIOUSNESS [None]
  - PANCREATITIS ACUTE [None]
